FAERS Safety Report 9638572 (Version 2)
Quarter: 2013Q4

REPORT INFORMATION
  Report Type: Spontaneous
  Country: IT (occurrence: IT)
  Receive Date: 20131022
  Receipt Date: 20131022
  Transmission Date: 20140711
  Serious: Yes (Hospitalization)
  Sender: FDA-Public Use
  Company Number: IT-TEVA-432792ISR

PATIENT
  Age: 74 Year
  Sex: Male
  Weight: 80 kg

DRUGS (7)
  1. IBUPROFENE [Suspect]
     Indication: MUSCULOSKELETAL CHEST PAIN
     Dosage: 600 MILLIGRAM DAILY;
     Route: 048
     Dates: start: 20130806, end: 20130813
  2. SINTROM 1MG [Interacting]
     Indication: PROPHYLAXIS
     Dosage: 1 DOSAGE FORMS DAILY;
     Route: 048
     Dates: start: 20120101, end: 20130813
  3. LASIX 25MG [Concomitant]
  4. NORVASC 5MG [Concomitant]
  5. TRIATEC 5MG [Concomitant]
  6. OMEPRAZOLO TEVA 20MG [Concomitant]
  7. SIMVASTATINA [Concomitant]

REACTIONS (3)
  - Anaemia [Recovering/Resolving]
  - Intestinal haemorrhage [Recovering/Resolving]
  - Drug interaction [Recovering/Resolving]
